FAERS Safety Report 8610776-5 (Version None)
Quarter: 2012Q3

REPORT INFORMATION
  Report Type: 
  Country: None (occurrence: None)
  Receive Date: 20120423
  Receipt Date: 20090728
  Transmission Date: 20120928
  Serious: Yes (Other)
  Sender: FDA-Public Use
  Company Number: PHEH2009US08303

PATIENT

DRUGS (1)
  1. FEMARA [Suspect]
     Indication: BREAST CANCER FEMALE
     Dosage: 2.5 MG DAILY, ORAL
     Route: 048
     Dates: start: 20090206, end: 20090727

REACTIONS (1)
  - TUMOUR MARKER INCREASED [None]
